FAERS Safety Report 5670128-7 (Version None)
Quarter: 2008Q1

REPORT INFORMATION
  Report Type: 
  Country: None (occurrence: None)
  Receive Date: 20080312
  Receipt Date: 20080305
  Transmission Date: 20080703
  Serious: Yes (Life-Threatening)
  Sender: FDA-Public Use
  Company Number: 062-21880-08030226

PATIENT
  Age: 59 Year
  Sex: Male
  Weight: 70 kg

DRUGS (2)
  1. REVLIMID [Suspect]
     Indication: PLASMACYTOMA
     Dosage: 25 MG, ORAL
     Route: 048
     Dates: start: 20080117, end: 20080206
  2. DEXAMETHASONE TAB [Concomitant]

REACTIONS (4)
  - BLINDNESS [None]
  - EMBOLISM [None]
  - ISCHAEMIA [None]
  - RETINAL ISCHAEMIA [None]
